FAERS Safety Report 25953169 (Version 1)
Quarter: 2025Q4

REPORT INFORMATION
  Report Type: Spontaneous
  Country: EU (occurrence: EU)
  Receive Date: 20251023
  Receipt Date: 20251023
  Transmission Date: 20260118
  Serious: Yes (Hospitalization)
  Sender: FRESENIUS KABI
  Company Number: None

PATIENT
  Age: 84 Year
  Sex: Male

DRUGS (3)
  1. POSACONAZOLE [Suspect]
     Active Substance: POSACONAZOLE
     Indication: Prophylaxis
     Dosage: 1 A DAY WITH TAKING VIDAZA
     Route: 048
     Dates: start: 20250714, end: 20250826
  2. VENETOCLAX [Suspect]
     Active Substance: VENETOCLAX
     Indication: Acute myeloid leukaemia
     Dosage: 1 PER DAY?FOA: FILM-COATED TABLET
     Route: 048
     Dates: start: 20250210, end: 20250826
  3. VIDAZA 25 MG/ML POWDER FOR INJECTABLE SUSPENSION, 1 vial [Concomitant]
     Indication: Acute myeloid leukaemia
     Dosage: 118MG DAILY FOR 7 DAYS?FOA: POWDER FOR SUSPENSION FOR INJECTION
     Route: 058
     Dates: start: 20250210, end: 20250826

REACTIONS (2)
  - Hyponatraemia [Recovered/Resolved]
  - Staphylococcal bacteraemia [Recovering/Resolving]

NARRATIVE: CASE EVENT DATE: 20250826
